FAERS Safety Report 23487422 (Version 1)
Quarter: 2024Q1

REPORT INFORMATION
  Report Type: Spontaneous
  Country: US (occurrence: US)
  Receive Date: 20240206
  Receipt Date: 20240206
  Transmission Date: 20240409
  Serious: Yes (Other)
  Sender: FDA-Public Use
  Company Number: US-BRISTOL-MYERS SQUIBB COMPANY-2024-019199

PATIENT
  Age: 65 Year
  Sex: Female
  Weight: 68.95 kg

DRUGS (3)
  1. REVLIMID [Suspect]
     Active Substance: LENALIDOMIDE
     Indication: Plasma cell myeloma
     Dosage: DAILY FOR 21 DAYS
     Dates: start: 201803, end: 201810
  2. VELCADE [Suspect]
     Active Substance: BORTEZOMIB
     Indication: Plasma cell myeloma
     Dosage: ON DAYS 1. 8 AND 15
     Dates: start: 201803
  3. DEXAMETHASONE [Suspect]
     Active Substance: DEXAMETHASONE
     Indication: Plasma cell myeloma
     Dosage: ON DAYS 1, 8, 15, 22
     Dates: start: 201803

REACTIONS (16)
  - Rash [Recovered/Resolved]
  - Hepatitis [Unknown]
  - Abdominal discomfort [Unknown]
  - Atelectasis [Unknown]
  - Hepatic mass [Unknown]
  - Hepatic steatosis [Unknown]
  - Peripheral swelling [Unknown]
  - Cough [Recovering/Resolving]
  - Increased tendency to bruise [Unknown]
  - Back pain [Not Recovered/Not Resolved]
  - Diarrhoea [Unknown]
  - Hepatic cyst [Unknown]
  - Skin disorder [Not Recovered/Not Resolved]
  - Procedural pain [Unknown]
  - Abdominal pain [Unknown]
  - Gastrointestinal pain [Unknown]

NARRATIVE: CASE EVENT DATE: 20180101
